FAERS Safety Report 15961529 (Version 1)
Quarter: 2019Q1

REPORT INFORMATION
  Report Type: Report from Study
  Country: ZA (occurrence: ZA)
  Receive Date: 20190214
  Receipt Date: 20190214
  Transmission Date: 20190417
  Serious: Yes (Other)
  Sender: FDA-Public Use
  Company Number: ZA-TEVA-2019-ZA-1008895

PATIENT
  Sex: Female

DRUGS (1)
  1. COPAXONE [Suspect]
     Active Substance: GLATIRAMER ACETATE
     Indication: MULTIPLE SCLEROSIS
     Dosage: 20 MILLIGRAM/MILLILITERS DAILY;
     Route: 058

REACTIONS (12)
  - Mouth swelling [Unknown]
  - Dyspnoea [Unknown]
  - Pharyngeal oedema [Unknown]
  - Maternal exposure during pregnancy [Unknown]
  - Hyperhidrosis [Unknown]
  - Palpitations [Unknown]
  - Immediate post-injection reaction [Unknown]
  - Rash [Unknown]
  - Visual impairment [Unknown]
  - Chest pain [Unknown]
  - Dysphagia [Unknown]
  - Vomiting [Unknown]
